FAERS Safety Report 9413350 (Version 1)
Quarter: 2013Q2

REPORT INFORMATION
  Report Type: Spontaneous
  Country: US (occurrence: None)
  Receive Date: 20130611
  Receipt Date: 20130611
  Transmission Date: 20140414
  Serious: Yes (Other)
  Sender: FDA-Public Use
  Company Number: PAN-2013-000070

PATIENT
  Age: 10 Year
  Sex: Male
  Weight: 28 kg

DRUGS (2)
  1. TACROLIMUS (TACROLIMUS) [Suspect]
     Indication: IMMUNOSUPPRESSANT DRUG THERAPY
     Dosage: 0.04 MG/KG/DAY ON SEVENTH POD, DRUG CONCENTRATION OF 8-12 NG/ML
  2. AZATHIOPRINE (AZATHIOPRINE) [Concomitant]

REACTIONS (8)
  - Subarachnoid haemorrhage [None]
  - Cerebral haemorrhage [None]
  - Posterior reversible encephalopathy syndrome [None]
  - Hypertension [None]
  - Insomnia [None]
  - Transaminases increased [None]
  - Restlessness [None]
  - Partial seizures [None]
